FAERS Safety Report 6830918-1 (Version None)
Quarter: 2010Q3

REPORT INFORMATION
  Report Type: 
  Country: None (occurrence: None)
  Receive Date: 20100712
  Receipt Date: 20100630
  Transmission Date: 20110219
  Serious: No
  Sender: FDA-Public Use
  Company Number: US-JNJFOC-20100700739

PATIENT
  Sex: Female
  Weight: 74.84 kg

DRUGS (1)
  1. FENTANYL-100 [Suspect]
     Indication: NEURALGIA
     Route: 062

REACTIONS (4)
  - HYPERSOMNIA [None]
  - PARAESTHESIA [None]
  - SKIN BURNING SENSATION [None]
  - TREATMENT NONCOMPLIANCE [None]
